FAERS Safety Report 7530154-X (Version None)
Quarter: 2011Q2

REPORT INFORMATION
  Report Type: 
  Country: None (occurrence: None)
  Receive Date: 20110606
  Receipt Date: 20110606
  Transmission Date: 20111010
  Serious: No
  Sender: FDA-Public Use
  Company Number: None

PATIENT
  Age: 4 Year
  Sex: Male
  Weight: 18.5975 kg

DRUGS (1)
  1. CEPHALEXIN [Suspect]
     Indication: PHARYNGITIS STREPTOCOCCAL
     Dosage: 6ML 2X DAILY 10 DAYS
     Dates: start: 20110429, end: 20110505

REACTIONS (5)
  - ERUCTATION [None]
  - DYSKINESIA [None]
  - VOMITING [None]
  - MUSCLE TWITCHING [None]
  - TREMOR [None]
